FAERS Safety Report 18912754 (Version 1)
Quarter: 2021Q1

REPORT INFORMATION
  Report Type: Report from Study
  Country: US (occurrence: US)
  Receive Date: 20210218
  Receipt Date: 20210218
  Transmission Date: 20210420
  Serious: Yes (Hospitalization)
  Sender: FDA-Public Use
  Company Number: US-JNJFOC-20210222299

PATIENT
  Age: 77 Year
  Sex: Female
  Weight: 59.5 kg

DRUGS (4)
  1. SELEXIPAG [Suspect]
     Active Substance: SELEXIPAG
     Indication: PULMONARY ARTERIAL HYPERTENSION
     Route: 048
  2. OPSUMIT [Concomitant]
     Active Substance: MACITENTAN
  3. ADEMPAS [Concomitant]
     Active Substance: RIOCIGUAT
  4. TREPROSTINIL. [Concomitant]
     Active Substance: TREPROSTINIL

REACTIONS (2)
  - Gastric disorder [Recovering/Resolving]
  - Chest pain [Recovering/Resolving]

NARRATIVE: CASE EVENT DATE: 20210207
